FAERS Safety Report 14720760 (Version 2)
Quarter: 2018Q2

REPORT INFORMATION
  Report Type: Report from Study
  Country: US (occurrence: US)
  Receive Date: 20180405
  Receipt Date: 20180412
  Transmission Date: 20180711
  Serious: Yes (Hospitalization)
  Sender: FDA-Public Use
  Company Number: US-JNJFOC-20180403282

PATIENT
  Age: 17 Year
  Sex: Female
  Weight: 48.99 kg

DRUGS (1)
  1. REMICADE [Suspect]
     Active Substance: INFLIXIMAB
     Indication: INFLAMMATORY BOWEL DISEASE
     Route: 042
     Dates: start: 20110607

REACTIONS (2)
  - Anal fissure [Recovered/Resolved with Sequelae]
  - Fistula [Recovered/Resolved with Sequelae]

NARRATIVE: CASE EVENT DATE: 201210
